FAERS Safety Report 17687770 (Version 2)
Quarter: 2020Q4

REPORT INFORMATION
  Report Type: Report from Study
  Country: MX (occurrence: MX)
  Receive Date: 20200421
  Receipt Date: 20201222
  Transmission Date: 20210113
  Serious: Yes (Hospitalization)
  Sender: FDA-Public Use
  Company Number: MX-BAYER-2020-065193

PATIENT
  Age: 67 Year
  Sex: Female

DRUGS (2)
  1. ADEMPAS [Suspect]
     Active Substance: RIOCIGUAT
     Indication: PULMONARY HYPERTENSION
     Dosage: 2.5 MG
     Dates: start: 20191203, end: 20200210
  2. ADEMPAS [Suspect]
     Active Substance: RIOCIGUAT
     Indication: PULMONARY HYPERTENSION
     Dosage: 0.5 DF, Q8HR
     Dates: start: 20200416

REACTIONS (5)
  - Incorrect product administration duration [None]
  - Product prescribing issue [None]
  - Incorrect product administration duration [None]
  - Hospitalisation [None]
  - Product prescribing issue [None]

NARRATIVE: CASE EVENT DATE: 2020
